FAERS Safety Report 8479255-2 (Version None)
Quarter: 2012Q2

REPORT INFORMATION
  Report Type: 
  Country: None (occurrence: None)
  Receive Date: 20120629
  Receipt Date: 20120622
  Transmission Date: 20120825
  Serious: Yes (Other)
  Sender: FDA-Public Use
  Company Number: US-GLAXOSMITHKLINE-A0952021A

PATIENT
  Age: 22 Year
  Sex: Female

DRUGS (2)
  1. KEPPRA [Concomitant]
  2. LAMICTAL [Suspect]
     Indication: CONVULSION
     Dosage: 250MG TWICE PER DAY
     Route: 048
     Dates: start: 20060101

REACTIONS (2)
  - MATERNAL EXPOSURE DURING PREGNANCY [None]
  - ABORTION SPONTANEOUS [None]
